FAERS Safety Report 10172841 (Version 1)
Quarter: 2014Q2

REPORT INFORMATION
  Report Type: Spontaneous
  Country: US (occurrence: None)
  Receive Date: 20140513
  Receipt Date: 20140513
  Transmission Date: 20141212
  Serious: Yes (Hospitalization, Other)
  Sender: FDA-Public Use
  Company Number: 2014-US-005223

PATIENT
  Age: 49 Year
  Sex: Female
  Weight: 72.6 kg

DRUGS (1)
  1. XYREM [Suspect]
     Indication: NARCOLEPSY
     Route: 048
     Dates: start: 201403

REACTIONS (9)
  - Convulsion [None]
  - Mental disorder [None]
  - Insomnia [None]
  - Sleep talking [None]
  - Condition aggravated [None]
  - Somnolence [None]
  - Headache [None]
  - Weight decreased [None]
  - Fall [None]
